FAERS Safety Report 5320745-9 (Version None)
Quarter: 2007Q2

REPORT INFORMATION
  Report Type: 
  Country: None (occurrence: None)
  Receive Date: 20070509
  Receipt Date: 20070428
  Transmission Date: 20071010
  Serious: Yes (Death, Other)
  Sender: FDA-Public Use
  Company Number: AT-SHR-AT-2007-015049

PATIENT
  Age: 87 Year
  Sex: Male

DRUGS (1)
  1. CAMPATH [Suspect]
     Dosage: 8 WEEKS OF TREATMENT
     Dates: start: 20050912, end: 20060101

REACTIONS (2)
  - DEATH [None]
  - MYELODYSPLASTIC SYNDROME [None]
